FAERS Safety Report 11068598 (Version 2)
Quarter: 2015Q3

REPORT INFORMATION
  Report Type: Spontaneous
  Country: FR (occurrence: FR)
  Receive Date: 20150427
  Receipt Date: 20150702
  Transmission Date: 20151125
  Serious: Yes (Hospitalization)
  Sender: FDA-Public Use
  Company Number: FR-SA-2015SA052342

PATIENT
  Age: 67 Year
  Sex: Male

DRUGS (3)
  1. BACTRIM [Suspect]
     Active Substance: SULFAMETHOXAZOLE\TRIMETHOPRIM
     Route: 048
     Dates: start: 20150219, end: 20150309
  2. VANCOMYCIN MYLAN [Concomitant]
     Active Substance: VANCOMYCIN
     Route: 042
     Dates: start: 20150129, end: 20150218
  3. RIFADINE [Suspect]
     Active Substance: RIFAMPIN
     Route: 042
     Dates: start: 20150219, end: 20150309

REACTIONS (1)
  - Pancytopenia [Recovering/Resolving]

NARRATIVE: CASE EVENT DATE: 20150304
